FAERS Safety Report 12893846 (Version 1)
Quarter: 2016Q4

REPORT INFORMATION
  Report Type: Spontaneous
  Country: US (occurrence: US)
  Receive Date: 20161028
  Receipt Date: 20161028
  Transmission Date: 20170207
  Serious: Yes (Other)
  Sender: FDA-Public Use
  Company Number: US-BAYER-2016-205804

PATIENT
  Sex: Female

DRUGS (1)
  1. SKYLA [Suspect]
     Active Substance: LEVONORGESTREL
     Dosage: 14 MCG/24HR, CONT
     Route: 015
     Dates: start: 2016

REACTIONS (10)
  - Ovarian cyst [None]
  - Headache [None]
  - Genital haemorrhage [None]
  - Acne [None]
  - Abdominal pain [None]
  - Abdominal distension [None]
  - Pelvic pain [None]
  - Vulvovaginitis [None]
  - Fluid retention [None]
  - Seborrhoea [None]

NARRATIVE: CASE EVENT DATE: 2016
